FAERS Safety Report 4445782-8 (Version None)
Quarter: 2004Q3

REPORT INFORMATION
  Report Type: 
  Country: None (occurrence: None)
  Receive Date: 20040910
  Receipt Date: 20040617
  Transmission Date: 20050211
  Serious: Yes (Life-Threatening, Hospitalization, Disabling, Other)
  Sender: FDA-Public Use
  Company Number: 200412097JP

PATIENT
  Age: 43 Year
  Sex: Male
  Weight: 53.1 kg

DRUGS (3)
  1. LANTUS [Suspect]
     Indication: METABOLIC DISORDER
     Route: 058
     Dates: start: 20031201
  2. OPTIPEN (INSULIN PUMP) [Suspect]
  3. NOVORAPID [Concomitant]
     Indication: METABOLIC DISORDER
     Dosage: DOSE: 0-15-14; DOSE UNIT: UNITS
     Route: 058
     Dates: start: 20020101

REACTIONS (12)
  - ABNORMAL BEHAVIOUR [None]
  - ALCOHOLIC PSYCHOSIS [None]
  - CONVULSION [None]
  - DEHYDRATION [None]
  - DEPRESSED LEVEL OF CONSCIOUSNESS [None]
  - DIABETIC KETOACIDOSIS [None]
  - HOSTILITY [None]
  - HYPOGLYCAEMIA [None]
  - MEDICATION ERROR [None]
  - MEMORY IMPAIRMENT [None]
  - NERVOUS SYSTEM DISORDER [None]
  - RHABDOMYOLYSIS [None]
